FAERS Safety Report 5792842-5 (Version None)
Quarter: 2008Q2

REPORT INFORMATION
  Report Type: 
  Country: None (occurrence: None)
  Receive Date: 20080624
  Receipt Date: 20080610
  Transmission Date: 20081010
  Serious: Yes (Hospitalization, Congenital Anomaly)
  Sender: FDA-Public Use
  Company Number: 2008BI007885

PATIENT
  Sex: Female

DRUGS (1)
  1. AVONEX [Suspect]
     Indication: MULTIPLE SCLEROSIS
     Dosage: 30 UG;QW;TRPL
     Route: 064
     Dates: start: 20070601, end: 20070825

REACTIONS (6)
  - CAESAREAN SECTION [None]
  - CARDIAC SEPTAL DEFECT [None]
  - MATERNAL DRUGS AFFECTING FOETUS [None]
  - PRE-ECLAMPSIA [None]
  - PREMATURE BABY [None]
  - SMALL FOR DATES BABY [None]
